FAERS Safety Report 17240788 (Version 1)
Quarter: 2020Q1

REPORT INFORMATION
  Report Type: Spontaneous
  Country: GB (occurrence: GB)
  Receive Date: 20200107
  Receipt Date: 20200107
  Transmission Date: 20200409
  Serious: Yes (Other)
  Sender: FDA-Public Use
  Company Number: GB-DEXPHARM-20191181

PATIENT
  Age: 77 Year
  Sex: Female
  Weight: 112 kg

DRUGS (9)
  1. OMEPRAZOLE. [Suspect]
     Active Substance: OMEPRAZOLE
     Indication: PRODUCT USED FOR UNKNOWN INDICATION
     Dates: start: 20190325
  2. LEVOTHYROXINE. [Concomitant]
     Active Substance: LEVOTHYROXINE
     Dates: start: 20180829
  3. AMLODIPINE [Suspect]
     Active Substance: AMLODIPINE BESYLATE
     Indication: PRODUCT USED FOR UNKNOWN INDICATION
     Dates: start: 20191206
  4. IBUPROFEN. [Concomitant]
     Active Substance: IBUPROFEN
     Dates: start: 20191001, end: 20191002
  5. EZETIMIBE. [Concomitant]
     Active Substance: EZETIMIBE
     Dates: start: 20180503
  6. BECLOMETASONE [Concomitant]
     Active Substance: BECLOMETHASONE DIPROPIONATE
     Dates: start: 20191206
  7. PARACETAMOL [Concomitant]
     Active Substance: ACETAMINOPHEN
     Indication: PAIN
     Dates: start: 20190612
  8. HYLO FORTE [Concomitant]
     Dates: start: 20180723
  9. NITROFURANTOIN. [Concomitant]
     Active Substance: NITROFURANTOIN
     Dates: start: 20190730

REACTIONS (1)
  - Bladder irritation [Recovered/Resolved]

NARRATIVE: CASE EVENT DATE: 20191206
